FAERS Safety Report 9401927 (Version 2)
Quarter: 2013Q3

REPORT INFORMATION
  Report Type: Spontaneous
  Country: US (occurrence: US)
  Receive Date: 20130716
  Receipt Date: 20130808
  Transmission Date: 20140515
  Serious: Yes (Other)
  Sender: FDA-Public Use
  Company Number: US-PFIZER INC-2013206509

PATIENT
  Age: 78 Year
  Sex: Male

DRUGS (3)
  1. CELEBREX [Suspect]
     Dosage: 200 MG, 2X/DAY
  2. PERCOCET [Concomitant]
     Dosage: 5 MG, AS NEEDED
  3. TYLENOL [Concomitant]
     Dosage: UNK

REACTIONS (1)
  - Gastrointestinal haemorrhage [Unknown]
